FAERS Safety Report 7620025-2 (Version None)
Quarter: 2011Q3

REPORT INFORMATION
  Report Type: 
  Country: None (occurrence: None)
  Receive Date: 20110719
  Receipt Date: 20110711
  Transmission Date: 20111222
  Serious: No
  Sender: FDA-Public Use
  Company Number: US-PFIZER INC-2011126308

PATIENT
  Sex: Male

DRUGS (4)
  1. LANTUS [Suspect]
     Indication: TYPE 2 DIABETES MELLITUS
     Dosage: 1 UNIT EVERY EVENING
     Route: 058
     Dates: start: 20110517
  2. GLIPIZIDE [Suspect]
     Dosage: UNK
  3. JANUVIA [Suspect]
     Dosage: 100 MG, UNK
  4. JANUVIA [Suspect]
     Dosage: 50 MG, UNK

REACTIONS (1)
  - BLOOD GLUCOSE ABNORMAL [None]
